FAERS Safety Report 7557715-6 (Version None)
Quarter: 2011Q2

REPORT INFORMATION
  Report Type: 
  Country: None (occurrence: None)
  Receive Date: 20110620
  Receipt Date: 20110610
  Transmission Date: 20111010
  Serious: No
  Sender: FDA-Public Use
  Company Number: US-JNJFOC-20110605470

PATIENT
  Age: 40 Year
  Sex: Female
  Weight: 185.52 kg

DRUGS (3)
  1. LITHIUM CARBONATE [Concomitant]
  2. RISPERDAL [Concomitant]
     Route: 048
  3. INVEGA SUSTENNA [Suspect]
     Indication: BIPOLAR I DISORDER
     Route: 030
     Dates: start: 20101201

REACTIONS (2)
  - PRODUCT QUALITY ISSUE [None]
  - INJECTION SITE MASS [None]
